FAERS Safety Report 7728106-X (Version None)
Quarter: 2011Q3

REPORT INFORMATION
  Report Type: 
  Country: None (occurrence: None)
  Receive Date: 20110905
  Receipt Date: 20091007
  Transmission Date: 20111222
  Serious: No
  Sender: FDA-Public Use
  Company Number: 2009BI023698

PATIENT
  Sex: Male

DRUGS (1)
  1. TYSABRI [Suspect]
     Indication: MULTIPLE SCLEROSIS
     Route: 042
     Dates: start: 20090128

REACTIONS (11)
  - LOSS OF CONSCIOUSNESS [None]
  - PERONEAL NERVE PALSY [None]
  - RASH PAPULAR [None]
  - FATIGUE [None]
  - HEADACHE [None]
  - GAIT DISTURBANCE [None]
  - CONTUSION [None]
  - FALL [None]
  - MULTIPLE SCLEROSIS [None]
  - MEMORY IMPAIRMENT [None]
  - MUSCULAR WEAKNESS [None]
